FAERS Safety Report 17550508 (Version 3)
Quarter: 2020Q2

REPORT INFORMATION
  Report Type: Spontaneous
  Country: US (occurrence: US)
  Receive Date: 20200317
  Receipt Date: 20200512
  Transmission Date: 20200713
  Serious: Yes (Other)
  Sender: FDA-Public Use
  Company Number: US-PFIZER INC-2020107036

PATIENT
  Age: 94 Year
  Sex: Male
  Weight: 86.18 kg

DRUGS (2)
  1. PREPARATION H SUPPOSITORY [Suspect]
     Active Substance: COCOA BUTTER\PHENYLEPHRINE HYDROCHLORIDE
     Indication: HAEMORRHOIDS
     Dosage: UNK (THREE OR FOUR A DAY)
     Route: 065
  2. ELIQUIS [Suspect]
     Active Substance: APIXABAN
     Dosage: 5 MG, 2X/DAY (5MG IN THE MORNING AND AT NIGHT)
     Route: 065

REACTIONS (2)
  - Constipation [Unknown]
  - Haemorrhage [Not Recovered/Not Resolved]
